FAERS Safety Report 10290658 (Version 1)
Quarter: 2014Q3

REPORT INFORMATION
  Report Type: Spontaneous
  Country: BR (occurrence: BR)
  Receive Date: 20140710
  Receipt Date: 20140710
  Transmission Date: 20150326
  Serious: Yes (Hospitalization)
  Sender: FDA-Public Use
  Company Number: BR-ELI_LILLY_AND_COMPANY-BR201407000962

PATIENT
  Age: 4 Year
  Sex: Male
  Weight: 16.2 kg

DRUGS (4)
  1. HUMULIN R [Suspect]
     Active Substance: INSULIN HUMAN
     Indication: DIABETES MELLITUS
     Dosage: UNK, OTHER
     Route: 058
     Dates: start: 20120302
  2. INFLUENZA VACCINE [Suspect]
     Active Substance: INFLUENZA VIRUS VACCINE
     Indication: INFLUENZA
     Dosage: UNK, UNKNOWN
     Route: 065
     Dates: start: 201406
  3. HUMULIN N [Suspect]
     Active Substance: INSULIN HUMAN
     Indication: DIABETES MELLITUS
     Dosage: 4 IU, EACH MORNING
     Route: 058
     Dates: start: 20120302
  4. HUMULIN N [Suspect]
     Active Substance: INSULIN HUMAN
     Dosage: 2 IU, EACH EVENING
     Route: 058
     Dates: start: 20120302

REACTIONS (5)
  - Influenza [Unknown]
  - Blood glucose fluctuation [Not Recovered/Not Resolved]
  - Pneumonitis [Unknown]
  - No therapeutic response [Not Recovered/Not Resolved]
  - Injection site pain [Not Recovered/Not Resolved]

NARRATIVE: CASE EVENT DATE: 201401
